FAERS Safety Report 10154475 (Version 1)
Quarter: 2014Q2

REPORT INFORMATION
  Report Type: Spontaneous
  Country: US (occurrence: US)
  Receive Date: 20140506
  Receipt Date: 20140506
  Transmission Date: 20141212
  Serious: Yes (Hospitalization)
  Sender: FDA-Public Use
  Company Number: US-ELI_LILLY_AND_COMPANY-US201404009031

PATIENT
  Age: 64 Year
  Sex: Female

DRUGS (8)
  1. ZYPREXA [Suspect]
     Indication: ANXIETY
     Dosage: 5 MG, QD
     Route: 048
     Dates: start: 20050101
  2. CETUXIMAB [Suspect]
     Indication: CERVIX CARCINOMA
     Dosage: 250 MG/M2, UNKNOWN
     Route: 042
     Dates: start: 20050921, end: 20051028
  3. CISPLATIN [Suspect]
     Indication: CERVIX CARCINOMA
     Dosage: 30 MG/M2, UNKNOWN
     Route: 042
     Dates: start: 20050921, end: 20051019
  4. MORPHINE SULFATE [Suspect]
     Indication: PAIN
     Dosage: UNK, PRN
     Route: 048
     Dates: start: 20050921
  5. MORPHINE SULFATE [Suspect]
     Indication: PAIN
     Dosage: UNK, PRN
     Route: 048
     Dates: start: 20050921
  6. SENNA                              /00142201/ [Concomitant]
     Dosage: UNK
     Dates: start: 20050914
  7. LOVENOX [Concomitant]
     Dosage: UNK
     Dates: start: 20050921
  8. BACTRIUM DS [Concomitant]
     Dosage: UNK
     Dates: start: 20051105

REACTIONS (7)
  - Confusional state [Recovered/Resolved]
  - Opportunistic infection [Recovered/Resolved]
  - Anaemia [Recovered/Resolved]
  - Hypomagnesaemia [Recovered/Resolved]
  - Urinary tract infection [Unknown]
  - Dehydration [Unknown]
  - Off label use [Unknown]
